FAERS Safety Report 13135211 (Version 3)
Quarter: 2018Q4

REPORT INFORMATION
  Report Type: Spontaneous
  Country: US (occurrence: US)
  Receive Date: 20170120
  Receipt Date: 20181001
  Transmission Date: 20190204
  Serious: Yes (Other)
  Sender: FDA-Public Use
  Company Number: US-DSJP-DSU-2016-129344

PATIENT

DRUGS (3)
  1. BENICAR HCT [Suspect]
     Active Substance: HYDROCHLOROTHIAZIDE\OLMESARTAN MEDOXOMIL
     Dosage: 40/25 MG 1/2 TABLET, QD
     Dates: start: 20070315
  2. BENICAR [Suspect]
     Active Substance: OLMESARTAN MEDOXOMIL
     Indication: PRODUCT USED FOR UNKNOWN INDICATION
     Dosage: UNK
  3. BENICAR HCT [Suspect]
     Active Substance: HYDROCHLOROTHIAZIDE\OLMESARTAN MEDOXOMIL
     Indication: HYPERTENSION
     Dosage: 40/25 MG, QD
     Dates: start: 20050101, end: 2011

REACTIONS (13)
  - Hiatus hernia [Not Recovered/Not Resolved]
  - Diverticulum intestinal [Unknown]
  - Polyp [Not Recovered/Not Resolved]
  - Oesophageal stenosis [Unknown]
  - Sprue-like enteropathy [Not Recovered/Not Resolved]
  - Leukoplakia [Unknown]
  - Constipation [Unknown]
  - Gastric ulcer [Not Recovered/Not Resolved]
  - Anal fissure [Unknown]
  - Acute kidney injury [Unknown]
  - Gastrooesophageal reflux disease [Not Recovered/Not Resolved]
  - Haemorrhoids [Not Recovered/Not Resolved]
  - Product administration error [Unknown]

NARRATIVE: CASE EVENT DATE: 20060101
